FAERS Safety Report 4378314-3 (Version None)
Quarter: 2004Q2

REPORT INFORMATION
  Report Type: 
  Country: None (occurrence: None)
  Receive Date: 20040609
  Receipt Date: 20040526
  Transmission Date: 20050107
  Serious: Yes (Other)
  Sender: FDA-Public Use
  Company Number: USA040568491

PATIENT
  Age: 67 Year
  Sex: Female
  Weight: 64 kg

DRUGS (3)
  1. FORTEO [Suspect]
     Indication: OSTEOPOROSIS
     Dosage: 20 UG/1 DAY
     Dates: start: 20040101
  2. CALCIUM [Concomitant]
  3. MULTIVITAMIN [Concomitant]

REACTIONS (2)
  - ATRIAL FIBRILLATION [None]
  - PHARMACEUTICAL PRODUCT COMPLAINT [None]
